FAERS Safety Report 23491553 (Version 1)
Quarter: 2024Q1

REPORT INFORMATION
  Report Type: Report from Study
  Country: US (occurrence: US)
  Receive Date: 20240207
  Receipt Date: 20240207
  Transmission Date: 20240410
  Serious: No
  Sender: FDA-Public Use
  Company Number: US-ACADIA PHARMACEUTICALS INC.-ACA-2024-TRF-000195

PATIENT
  Sex: Female

DRUGS (1)
  1. DAYBUE [Suspect]
     Active Substance: TROFINETIDE
     Indication: Rett syndrome
     Dosage: 50 MILLILITER, BID
     Route: 048
     Dates: end: 20240101

REACTIONS (8)
  - Ill-defined disorder [Not Recovered/Not Resolved]
  - Drug ineffective [Not Recovered/Not Resolved]
  - Flatulence [Unknown]
  - Abdominal discomfort [Unknown]
  - Gastrooesophageal reflux disease [Unknown]
  - Drainage [Unknown]
  - Retching [Unknown]
  - Diarrhoea [Unknown]
